FAERS Safety Report 5002643-3 (Version None)
Quarter: 2006Q2

REPORT INFORMATION
  Report Type: 
  Country: None (occurrence: None)
  Receive Date: 20060510
  Receipt Date: 20060426
  Transmission Date: 20061013
  Serious: Yes (Other)
  Sender: FDA-Public Use
  Company Number: 224462

PATIENT
  Age: 32 Year
  Sex: Female

DRUGS (2)
  1. MABTHERA (RITUXIMAB) CONC FOR SOLUTION FOR INFUSION [Suspect]
     Indication: RHEUMATOID ARTHRITIS
     Dosage: 1 G,
  2. CORTICOID (CORTICOSTEROID NOS) [Suspect]

REACTIONS (2)
  - PARANOIA [None]
  - PYREXIA [None]
